FAERS Safety Report 4896402-X (Version None)
Quarter: 2006Q1

REPORT INFORMATION
  Report Type: 
  Country: None (occurrence: None)
  Receive Date: 20060131
  Receipt Date: 20060117
  Transmission Date: 20060701
  Serious: Yes (Hospitalization)
  Sender: FDA-Public Use
  Company Number: US-BRISTOL-MYERS SQUIBB COMPANY-13251962

PATIENT
  Age: 72 Year
  Sex: Female

DRUGS (2)
  1. ABILIFY [Suspect]
     Route: 048
  2. DIURETIC [Concomitant]

REACTIONS (1)
  - DRUG LEVEL INCREASED [None]
